FAERS Safety Report 13874173 (Version 1)
Quarter: 2017Q3

REPORT INFORMATION
  Report Type: Spontaneous
  Country: US (occurrence: US)
  Receive Date: 20170816
  Receipt Date: 20170816
  Transmission Date: 20171127
  Serious: No
  Sender: FDA-Public Use
  Company Number: US-AMGEN-USASP2017116281

PATIENT
  Age: 44 Year
  Sex: Female

DRUGS (7)
  1. ENBREL [Suspect]
     Active Substance: ETANERCEPT
     Indication: PALINDROMIC RHEUMATISM
     Dosage: 50 MG, QWK
     Route: 065
     Dates: start: 2017
  2. FOLIC ACID. [Concomitant]
     Active Substance: FOLIC ACID
     Dosage: 1 MG, QD (NOT TAKE IT ON THE DAY TAKES METHOTREXATE)
  3. ENBREL [Suspect]
     Active Substance: ETANERCEPT
     Indication: BURSITIS
  4. METHOTREXATE. [Concomitant]
     Active Substance: METHOTREXATE
     Dosage: 40 MG, QWK (8 TABLETS WEEKLY, 5 MG EACH)
  5. LEXAPRO [Concomitant]
     Active Substance: ESCITALOPRAM OXALATE
     Dosage: 20 MG, QD
  6. LISINOPRIL. [Concomitant]
     Active Substance: LISINOPRIL
     Dosage: 10 MG, QD
  7. PREDNISONE. [Concomitant]
     Active Substance: PREDNISONE
     Dosage: TAPER DOSE FROM 15MG TO 10MG TO 5MG FOR 3 WEEKS
     Dates: end: 20170728

REACTIONS (7)
  - Body temperature abnormal [Unknown]
  - Injection site urticaria [Not Recovered/Not Resolved]
  - Injection site reaction [Not Recovered/Not Resolved]
  - Off label use [Unknown]
  - Injection site warmth [Not Recovered/Not Resolved]
  - Wrong technique in product usage process [Unknown]
  - Injection site erythema [Not Recovered/Not Resolved]

NARRATIVE: CASE EVENT DATE: 2017
